FAERS Safety Report 6311637-7 (Version None)
Quarter: 2009Q3

REPORT INFORMATION
  Report Type: 
  Country: None (occurrence: None)
  Receive Date: 20090817
  Receipt Date: 20090807
  Transmission Date: 20100115
  Serious: Yes (Hospitalization)
  Sender: FDA-Public Use
  Company Number: B0587778A

PATIENT
  Sex: Male

DRUGS (7)
  1. SERETIDE [Suspect]
     Indication: ASTHMA
     Dosage: 2PUFF PER DAY
     Route: 055
  2. HYPERIUM [Suspect]
     Dosage: 2MG PER DAY
     Route: 048
  3. ISOPTIN SR [Suspect]
     Dosage: 480MG PER DAY
     Route: 048
  4. COAPROVEL [Suspect]
     Dosage: 1UNIT PER DAY
     Route: 048
  5. COVERSYL [Suspect]
     Dosage: 4MG PER DAY
     Route: 048
  6. LAMALINE [Concomitant]
     Indication: DRUG USE FOR UNKNOWN INDICATION
     Route: 065
  7. DIANTALVIC [Concomitant]
     Indication: DRUG USE FOR UNKNOWN INDICATION
     Route: 065

REACTIONS (2)
  - HEADACHE [None]
  - PHOTOPHOBIA [None]
